FAERS Safety Report 22861030 (Version 2)
Quarter: 2023Q4

REPORT INFORMATION
  Report Type: Spontaneous
  Country: FR (occurrence: FR)
  Receive Date: 20230824
  Receipt Date: 20231005
  Transmission Date: 20240110
  Serious: Yes (Hospitalization)
  Sender: FDA-Public Use
  Company Number: None

PATIENT
  Age: 59 Year
  Sex: Female

DRUGS (3)
  1. TRAMADOL [Suspect]
     Active Substance: TRAMADOL\TRAMADOL HYDROCHLORIDE
     Indication: Product used for unknown indication
     Dosage: AT LEAST 350 MG/D
  2. RISPERIDONE [Suspect]
     Active Substance: RISPERIDONE
     Indication: Product used for unknown indication
     Dosage: 2 TO 4 MG/D
     Dates: start: 2021
  3. BROMAZEPAM [Suspect]
     Active Substance: BROMAZEPAM
     Indication: Product used for unknown indication
     Dosage: AT LEAST 3 LEXOMIL/D
     Dates: start: 1997

REACTIONS (2)
  - Extrapyramidal disorder [Recovering/Resolving]
  - Drug use disorder [Not Recovered/Not Resolved]
